FAERS Safety Report 23139234 (Version 1)
Quarter: 2023Q4

REPORT INFORMATION
  Report Type: Spontaneous
  Country: US (occurrence: US)
  Receive Date: 20231102
  Receipt Date: 20231102
  Transmission Date: 20240110
  Serious: No
  Sender: FDA-Public Use
  Company Number: US-KOWA PHARMACEUTICALS-2023KOW00040

PATIENT
  Age: 49 Year
  Sex: Female

DRUGS (1)
  1. SEGLENTIS [Suspect]
     Active Substance: CELECOXIB\TRAMADOL HYDROCHLORIDE
     Dosage: 200 MG

REACTIONS (2)
  - Nausea [Not Recovered/Not Resolved]
  - Vomiting [Not Recovered/Not Resolved]
